FAERS Safety Report 7782105-0 (Version None)
Quarter: 2011Q3

REPORT INFORMATION
  Report Type: 
  Country: None (occurrence: None)
  Receive Date: 20110927
  Receipt Date: 20110920
  Transmission Date: 20111222
  Serious: Yes (Death, Other)
  Sender: FDA-Public Use
  Company Number: US-ELI_LILLY_AND_COMPANY-US201108001912

PATIENT
  Sex: Female

DRUGS (13)
  1. ZOLPIDEM [Concomitant]
     Dosage: UNK, UNKNOWN
  2. FEMRING [Concomitant]
     Dosage: UNK, UNKNOWN
  3. OXYCONTIN [Concomitant]
     Dosage: UNK, UNKNOWN
  4. ACYCLOVIR [Concomitant]
     Dosage: UNK, UNKNOWN
  5. HUMATROPE [Suspect]
     Dosage: 0.4 MG, UNK
  6. TESTIM [Concomitant]
     Dosage: UNK, UNKNOWN
  7. HUMATROPE [Suspect]
     Indication: GROWTH HORMONE DEFICIENCY
     Dosage: 0.5 MG, UNK
     Dates: start: 20040101
  8. FLUDROCORTISON [Concomitant]
     Dosage: UNK, UNKNOWN
  9. HYDROCORTISONE [Concomitant]
     Dosage: UNK, UNKNOWN
  10. LEVAQUIN [Concomitant]
     Dosage: UNK, UNKNOWN
  11. HUMATROPE [Suspect]
     Dosage: 0.3 MG, QD
     Route: 030
  12. OXYCODONE AND ACETAMINOPHEN [Concomitant]
     Dosage: UNK, UNKNOWN
  13. ONDASETRON [Concomitant]
     Dosage: UNK, UNKNOWN

REACTIONS (10)
  - WEIGHT INCREASED [None]
  - DEPRESSION [None]
  - INSULIN-LIKE GROWTH FACTOR [None]
  - LABORATORY TEST ABNORMAL [None]
  - THYROID NEOPLASM [None]
  - HORMONE LEVEL ABNORMAL [None]
  - DEATH [None]
  - DYSPHAGIA [None]
  - MALAISE [None]
  - THYROID PAIN [None]
